FAERS Safety Report 11540751 (Version 5)
Quarter: 2016Q4

REPORT INFORMATION
  Report Type: Spontaneous
  Country: FR (occurrence: FR)
  Receive Date: 20150923
  Receipt Date: 20161115
  Transmission Date: 20170206
  Serious: Yes (Hospitalization, Other)
  Sender: FDA-Public Use
  Company Number: FR-GLAXOSMITHKLINE-FR2015GSK135438

PATIENT
  Age: 33 Year
  Sex: Female

DRUGS (9)
  1. LAMICTAL [Suspect]
     Active Substance: LAMOTRIGINE
     Indication: DEPRESSION
     Dosage: UNK
     Route: 048
     Dates: start: 20150702, end: 20150824
  2. SOLIAN [Concomitant]
     Active Substance: AMISULPRIDE
     Indication: DEPRESSION
     Dosage: UNK
     Route: 048
     Dates: start: 20150731, end: 20150828
  3. SOLIAN [Concomitant]
     Active Substance: AMISULPRIDE
     Dosage: 100 MG, QD
     Dates: start: 20150820
  4. LYSANXIA [Concomitant]
     Active Substance: PRAZEPAM
     Dosage: 10 MG, U
  5. ZELITREX [Concomitant]
     Active Substance: VALACYCLOVIR HYDROCHLORIDE
  6. SEROPLEX [Concomitant]
     Active Substance: ESCITALOPRAM OXALATE
     Dosage: 5 MG, U
  7. XANAX [Concomitant]
     Active Substance: ALPRAZOLAM
  8. LAMICTAL [Suspect]
     Active Substance: LAMOTRIGINE
     Dosage: 100 MG, UNK
  9. SOLIAN [Concomitant]
     Active Substance: AMISULPRIDE
     Dosage: 50 MG, QD
     Dates: start: 20150824

REACTIONS (2)
  - Drug reaction with eosinophilia and systemic symptoms [Recovering/Resolving]
  - Incorrect dose administered [Unknown]

NARRATIVE: CASE EVENT DATE: 20150702
